FAERS Safety Report 6169291-3 (Version None)
Quarter: 2009Q2

REPORT INFORMATION
  Report Type: 
  Country: None (occurrence: None)
  Receive Date: 20090424
  Receipt Date: 20090420
  Transmission Date: 20091009
  Serious: Yes (Hospitalization, Other)
  Sender: FDA-Public Use
  Company Number: SPV1-2009-00669

PATIENT
  Age: 38 Year
  Sex: Female
  Weight: 84.8 kg

DRUGS (3)
  1. PENTASA [Suspect]
     Indication: CROHN'S DISEASE
     Dosage: ORAL, 8 DF, 1X/DAY, QD, ORAL
     Route: 048
     Dates: start: 20071001, end: 20080401
  2. PENTASA [Suspect]
     Indication: CROHN'S DISEASE
     Dosage: ORAL, 8 DF, 1X/DAY, QD, ORAL
     Route: 048
     Dates: start: 20090301
  3. BUDESONIDE [Suspect]
     Indication: CROHN'S DISEASE
     Dosage: 3 MG, 3X/DAY, TID, ORAL
     Route: 048
     Dates: start: 20090301

REACTIONS (8)
  - CONDITION AGGRAVATED [None]
  - CONSTIPATION [None]
  - CROHN'S DISEASE [None]
  - OFF LABEL USE [None]
  - PYREXIA [None]
  - SWELLING FACE [None]
  - SWOLLEN TONGUE [None]
  - VISION BLURRED [None]
